FAERS Safety Report 10555040 (Version 2)
Quarter: 2014Q4

REPORT INFORMATION
  Report Type: Spontaneous
  Country: CN (occurrence: CN)
  Receive Date: 20141030
  Receipt Date: 20141209
  Transmission Date: 20150529
  Serious: Yes (Other)
  Sender: FDA-Public Use
  Company Number: CN-JNJFOC-20141014257

PATIENT
  Age: 6 Year
  Sex: Female
  Weight: 25 kg

DRUGS (4)
  1. AMOXICILLIN. [Suspect]
     Active Substance: AMOXICILLIN
     Indication: UPPER RESPIRATORY TRACT INFECTION
     Route: 048
     Dates: start: 20140320, end: 20140321
  2. TYLENOL [Suspect]
     Active Substance: ACETAMINOPHEN
     Indication: PYREXIA
     Route: 048
     Dates: start: 20140320, end: 20140321
  3. IBUPROFEN. [Suspect]
     Active Substance: IBUPROFEN
     Indication: PYREXIA
     Dosage: 65 MG
     Route: 048
     Dates: start: 20140320, end: 20140321
  4. ZINC GLUCONATE [Suspect]
     Active Substance: ZINC GLUCONATE
     Indication: PYREXIA
     Dosage: 65 MG
     Route: 048
     Dates: start: 20140320, end: 20140321

REACTIONS (2)
  - Leukopenia [Recovered/Resolved]
  - Vomiting [Recovered/Resolved]

NARRATIVE: CASE EVENT DATE: 20140321
